FAERS Safety Report 12636796 (Version 2)
Quarter: 2016Q3

REPORT INFORMATION
  Report Type: Spontaneous
  Country: CO (occurrence: CO)
  Receive Date: 20160809
  Receipt Date: 20160908
  Transmission Date: 20161109
  Serious: Yes (Congenital Anomaly)
  Sender: FDA-Public Use
  Company Number: CO-ELI_LILLY_AND_COMPANY-CO201608002294

PATIENT
  Age: 0 Day

DRUGS (2)
  1. HUMULIN N [Suspect]
     Active Substance: INSULIN HUMAN
     Indication: GESTATIONAL DIABETES
     Dosage: 12 U, AT NIGHT
     Route: 064
     Dates: end: 20160428
  2. METFORMIN [Concomitant]
     Active Substance: METFORMIN HYDROCHLORIDE
     Indication: GESTATIONAL DIABETES
     Dosage: 3 PILLS OF 500 MG
     Route: 064
     Dates: start: 201509, end: 201604

REACTIONS (3)
  - Congenital inguinal hernia [Not Recovered/Not Resolved]
  - Exposure during breast feeding [Unknown]
  - Foetal exposure during pregnancy [Recovered/Resolved]

NARRATIVE: CASE EVENT DATE: 20160429
